FAERS Safety Report 21238085 (Version 4)
Quarter: 2022Q4

REPORT INFORMATION
  Report Type: Spontaneous
  Country: US (occurrence: US)
  Receive Date: 20220822
  Receipt Date: 20221111
  Transmission Date: 20230112
  Serious: No
  Sender: FDA-Public Use
  Company Number: US-PFIZER INC-202201069299

PATIENT
  Age: 80 Year
  Sex: Female
  Weight: 89.8 kg

DRUGS (1)
  1. ENBREL [Suspect]
     Active Substance: ETANERCEPT
     Indication: Psoriatic arthropathy
     Dosage: 50 MILLIGRAM, QWK
     Route: 065
     Dates: start: 2021

REACTIONS (4)
  - Skin reaction [Unknown]
  - Injection site erythema [Unknown]
  - Injection site pruritus [Not Recovered/Not Resolved]
  - Injection site discolouration [Not Recovered/Not Resolved]
